FAERS Safety Report 18916202 (Version 1)
Quarter: 2021Q1

REPORT INFORMATION
  Report Type: Other
  Country: CA (occurrence: CA)
  Receive Date: 20210218
  Receipt Date: 20210218
  Transmission Date: 20210420
  Serious: Yes (Other)
  Sender: FDA-Public Use
  Company Number: CA-CELLTRION INC.-2021CA001775

PATIENT

DRUGS (20)
  1. RITUXIMAB (UNKNOWN) [Suspect]
     Active Substance: RITUXIMAB
     Indication: RENAL FAILURE
     Dosage: 500 MG
     Route: 042
  2. AMLODIPINE BESILATE [Concomitant]
     Active Substance: AMLODIPINE BESYLATE
     Indication: PRODUCT USED FOR UNKNOWN INDICATION
  3. ATIVAN [Concomitant]
     Active Substance: LORAZEPAM
     Indication: PRODUCT USED FOR UNKNOWN INDICATION
  4. LORAZEPAM. [Concomitant]
     Active Substance: LORAZEPAM
  5. PROLIA [Concomitant]
     Active Substance: DENOSUMAB
     Indication: PRODUCT USED FOR UNKNOWN INDICATION
  6. RITUXIMAB (UNKNOWN) [Suspect]
     Active Substance: RITUXIMAB
     Dosage: 500 MG, 1 EVERY 15 DAYS
     Route: 042
  7. PANTOPRAZOLE [Concomitant]
     Active Substance: PANTOPRAZOLE
  8. BENADRYL [Concomitant]
     Active Substance: DIPHENHYDRAMINE HYDROCHLORIDE
     Indication: PREMEDICATION
     Dosage: 50 MG
     Route: 048
  9. SEAWATER [Concomitant]
     Active Substance: SODIUM CHLORIDE
  10. SYNTHROID [Concomitant]
     Active Substance: LEVOTHYROXINE SODIUM
     Indication: PRODUCT USED FOR UNKNOWN INDICATION
  11. VENLAFAXINE HYDROCHLORIDE. [Concomitant]
     Active Substance: VENLAFAXINE HYDROCHLORIDE
  12. AMLODIPINE [Concomitant]
     Active Substance: AMLODIPINE BESYLATE
  13. METHYLPREDNISOLONE SODIUM SUCCINATE. [Concomitant]
     Active Substance: METHYLPREDNISOLONE SODIUM SUCCINATE
     Indication: PREMEDICATION
     Dosage: 100 MG
     Route: 042
  14. TYLENOL [Concomitant]
     Active Substance: ACETAMINOPHEN
     Indication: PREMEDICATION
     Dosage: 650 MG
     Route: 048
  15. RITUXIMAB (UNKNOWN) [Suspect]
     Active Substance: RITUXIMAB
     Indication: ANTI-NEUTROPHIL CYTOPLASMIC ANTIBODY POSITIVE VASCULITIS
     Dosage: UNK (DURATION: ?212.0)
     Route: 042
  16. PREDNISONE. [Concomitant]
     Active Substance: PREDNISONE
     Indication: PRODUCT USED FOR UNKNOWN INDICATION
  17. PMS?AZITHROMYCIN [Concomitant]
     Active Substance: AZITHROMYCIN ANHYDROUS
  18. MACROGOL [Concomitant]
     Active Substance: POLYETHYLENE GLYCOLS
  19. SALBUTAMOL [Concomitant]
     Active Substance: ALBUTEROL
  20. CALCIUM [Concomitant]
     Active Substance: CALCIUM

REACTIONS (8)
  - Nasopharyngitis [Recovered/Resolved]
  - Off label use [Unknown]
  - Blood pressure systolic increased [Recovered/Resolved]
  - Pyrexia [Recovered/Resolved]
  - Pneumonia [Recovered/Resolved]
  - Blood pressure systolic abnormal [Recovered/Resolved]
  - Secretion discharge [Recovered/Resolved]
  - Sputum discoloured [Recovered/Resolved]
